FAERS Safety Report 9494252 (Version 1)
Quarter: 2013Q3

REPORT INFORMATION
  Report Type: Spontaneous
  Country: US (occurrence: None)
  Receive Date: 20130830
  Receipt Date: 20130830
  Transmission Date: 20140515
  Serious: Yes (Death, Other)
  Sender: FDA-Public Use
  Company Number: None

PATIENT
  Sex: Male

DRUGS (5)
  1. BACLOFEN [Suspect]
     Indication: PAIN
  2. DILAUDID [Suspect]
  3. CLONIDINE [Suspect]
  4. DROPERIDOL [Suspect]
  5. BUPIVACAINE [Suspect]

REACTIONS (2)
  - Medical device complication [None]
  - Cardiac disorder [None]
